FAERS Safety Report 24673065 (Version 1)
Quarter: 2024Q4

REPORT INFORMATION
  Report Type: Report from Study
  Country: US (occurrence: US)
  Receive Date: 20241128
  Receipt Date: 20241128
  Transmission Date: 20250114
  Serious: No
  Sender: ACADIA PHARMACEUTICALS
  Company Number: US-ACADIA PHARMACEUTICALS INC.-ACA-2024-PIM-007404

PATIENT
  Sex: Female

DRUGS (14)
  1. NUPLAZID [Suspect]
     Active Substance: PIMAVANSERIN TARTRATE
     Indication: Parkinson^s disease
     Dosage: 34 MILLIGRAM, QD
     Route: 048
     Dates: start: 20240724, end: 20241029
  2. CLONAZEPAM [Concomitant]
     Active Substance: CLONAZEPAM
  3. CLOZAPINE [Concomitant]
     Active Substance: CLOZAPINE
  4. XARELTO [Concomitant]
     Active Substance: RIVAROXABAN
  5. QUETIAPINE [Concomitant]
     Active Substance: QUETIAPINE
  6. FLUOXETINE [Concomitant]
     Active Substance: FLUOXETINE HYDROCHLORIDE
  7. FUROSEMIDE [Concomitant]
     Active Substance: FUROSEMIDE
  8. PREGABALIN [Concomitant]
     Active Substance: PREGABALIN
  9. OXYCODONE/APAP [Concomitant]
     Active Substance: ACETAMINOPHEN\OXYCODONE HYDROCHLORIDE
  10. BACLOFEN [Concomitant]
     Active Substance: BACLOFEN
  11. SPIRIVA [Concomitant]
     Active Substance: TIOTROPIUM BROMIDE MONOHYDRATE
  12. LEVALBUTEROL [Concomitant]
     Active Substance: LEVALBUTEROL
  13. CLARITIN [Concomitant]
     Active Substance: LORATADINE
  14. NEXIUM I.V. [Concomitant]
     Active Substance: ESOMEPRAZOLE SODIUM

REACTIONS (2)
  - Lymphoedema [Recovered/Resolved]
  - Gait inability [Recovered/Resolved]
